FAERS Safety Report 10077709 (Version 1)
Quarter: 2014Q2

REPORT INFORMATION
  Report Type: Spontaneous
  Country: US (occurrence: US)
  Receive Date: 20140414
  Receipt Date: 20140414
  Transmission Date: 20141212
  Serious: No
  Sender: FDA-Public Use
  Company Number: US-009507513-1404USA008032

PATIENT
  Sex: Female

DRUGS (3)
  1. JANUVIA [Suspect]
     Dosage: UNK
     Route: 048
     Dates: start: 2014, end: 2014
  2. JANUMET [Concomitant]
     Dosage: UNK
     Route: 048
     Dates: start: 20140312, end: 2014
  3. JANUMET [Concomitant]
     Dosage: UNK
     Dates: start: 2014

REACTIONS (1)
  - Glycosylated haemoglobin increased [Unknown]
